FAERS Safety Report 4982892-0 (Version None)
Quarter: 2006Q2

REPORT INFORMATION
  Report Type: 
  Country: None (occurrence: None)
  Receive Date: 20060420
  Receipt Date: 20060405
  Transmission Date: 20061013
  Serious: Yes (Hospitalization)
  Sender: FDA-Public Use
  Company Number: SUSI-2005-00967

PATIENT
  Sex: Male

DRUGS (11)
  1. ADDERALL XR 30 [Suspect]
     Dosage: 30 MG, DAILY
     Dates: end: 20060101
  2. PREVACID [Concomitant]
  3. QUININE SULFATE [Concomitant]
  4. POTASSIUM (POTASSIUM) [Concomitant]
  5. TOPROL-XL [Concomitant]
  6. DEPAKOTE [Concomitant]
  7. ROBAXIN [Concomitant]
  8. PLAVIX [Concomitant]
  9. LYRICA [Concomitant]
  10. LASIX [Concomitant]
  11. FLONASE [Concomitant]

REACTIONS (7)
  - CHEST PAIN [None]
  - CORONARY ARTERY OCCLUSION [None]
  - HEADACHE [None]
  - PHARMACEUTICAL PRODUCT COMPLAINT [None]
  - POOR QUALITY DRUG ADMINISTERED [None]
  - TREMOR [None]
  - VISION BLURRED [None]
